FAERS Safety Report 5741218-5 (Version None)
Quarter: 2008Q2

REPORT INFORMATION
  Report Type: 
  Country: None (occurrence: None)
  Receive Date: 20080514
  Receipt Date: 20080501
  Transmission Date: 20081010
  Serious: Yes (Death)
  Sender: FDA-Public Use
  Company Number: 2008AL003048

PATIENT
  Age: 90 Year
  Sex: Male

DRUGS (2)
  1. DIGOXIN [Suspect]
  2. COUMADIN [Concomitant]

REACTIONS (4)
  - CEREBRAL HAEMORRHAGE [None]
  - DIZZINESS [None]
  - FALL [None]
  - SUBDURAL HAEMATOMA [None]
